FAERS Safety Report 9524113 (Version 1)
Quarter: 2013Q1

REPORT INFORMATION
  Report Type: Spontaneous
  Country: US (occurrence: None)
  Receive Date: 20130305
  Receipt Date: 20130305
  Transmission Date: 20140127
  Serious: Yes (Hospitalization)
  Sender: FDA-Public Use
  Company Number: 163-21880-12022591

PATIENT
  Age: 86 Year
  Sex: Male
  Weight: 63.5 kg

DRUGS (20)
  1. REVLIMID (LENALIDOMIDE) (25 MILLIGRAM, CAPSULES) [Suspect]
     Indication: PLASMA CELL MYELOMA
     Dosage: 25MG, 1 IN 1D, PO
     Route: 048
     Dates: start: 20110803
  2. FLOMAX (TAMSULOSIN HYDROCHLORIDE) [Concomitant]
  3. DIGOXIN (DIGOXIN) [Concomitant]
  4. EYE DROSP AR (TETRYZOLINE HYDROCHLORIDE) (DROPS) [Concomitant]
  5. CALCIUM +D (OS-CAL) [Concomitant]
  6. VITAMINS [Concomitant]
  7. DEXAMETHASONE (DEXAMETHASONE) [Concomitant]
  8. COREG (CARVEDILOL) [Concomitant]
  9. LIDODERM (LIDOCAINE) [Concomitant]
  10. AREDIA (PAMIDRONATE DISODIUM) [Concomitant]
  11. CALCITRIOL (CALCITRIOL) [Concomitant]
  12. COLACE (DOCUSATE SODIUM) [Concomitant]
  13. AMITIZA (LUBIPROSTONE) [Concomitant]
  14. PRADAXA (DABIGATRAN ETEXILATE MESILATE) [Concomitant]
  15. PREDNISONE (PREDNISONE) [Concomitant]
  16. LOVENOX (HEPARIN-FRACTION, SODIUM SALT) [Concomitant]
  17. PROTONIX [Concomitant]
  18. LAMICTAL [Concomitant]
  19. MIRALAX [Concomitant]
  20. AMIODARONE (AMIODARONE) [Concomitant]

REACTIONS (1)
  - Rectal haemorrhage [None]
